FAERS Safety Report 19222738 (Version 1)
Quarter: 2021Q2

REPORT INFORMATION
  Report Type: Report from Study
  Country: US (occurrence: US)
  Receive Date: 20210506
  Receipt Date: 20210506
  Transmission Date: 20210717
  Serious: Yes (Death, Other)
  Sender: FDA-Public Use
  Company Number: US-BAYER-2021-135444

PATIENT

DRUGS (2)
  1. ASPIRIN. [Suspect]
     Active Substance: ASPIRIN
  2. WARFARIN [Suspect]
     Active Substance: WARFARIN

REACTIONS (4)
  - International normalised ratio increased [None]
  - Pericardial haemorrhage [Fatal]
  - Labelled drug-drug interaction medication error [None]
  - Respiratory failure [Fatal]
